FAERS Safety Report 10389727 (Version 1)
Quarter: 2014Q1

REPORT INFORMATION
  Report Type: Spontaneous
  Country: US (occurrence: None)
  Receive Date: 20140306
  Receipt Date: 20140306
  Transmission Date: 20141002
  Serious: Yes (Other)
  Sender: FDA-Public Use
  Company Number: 163-21880-13091956

PATIENT
  Age: 60 Year
  Sex: Female

DRUGS (15)
  1. REVLIMID (LENALIDOMIDE) (25 MILLIGRAM, CAPSULES) [Suspect]
     Indication: PLASMA CELL MYELOMA
     Dosage: 21 IN 28D
     Dates: start: 20121004
  2. SYSTAINE (RHINARIS) [Concomitant]
  3. CALCIUM CITRATE I(CALCIIUM CITRATE W/COLECALCIFEROL) [Concomitant]
  4. ASPIRIN (ACETYLSALICYLIC ACID) [Concomitant]
  5. FOLIC ACID (FOLIC ACID) [Concomitant]
  6. COLACE (DOCUSATE SODIUM) [Concomitant]
  7. MULTIVITAMINS (MULTIVITAMINS) [Concomitant]
  8. DECADRON (DEXAMETHASONE) [Concomitant]
  9. VITAMIN B6 (PYRIDOXINE HYDROCHLORIDE) [Concomitant]
  10. AMBIEN  (ZOLPIDEM TARTRATE) [Concomitant]
  11. OMEPRAZOLE (OMEPRAZOLE) [Concomitant]
  12. VERAPAMIL HCL ER (VERAPAMIL HYDROCHLORIDE) [Concomitant]
  13. VALACYCLOVIR HCL (VALACICLOVIR HYDROCHLORIDE) [Concomitant]
  14. GABAPENTIN (GABAPENTIN) [Concomitant]
  15. FENTANYL (FENTANYL) [Concomitant]

REACTIONS (5)
  - Thrombophlebitis superficial [None]
  - Swelling [None]
  - Musculoskeletal chest pain [None]
  - Vascular injury [None]
  - Local swelling [None]
